FAERS Safety Report 15309301 (Version 13)
Quarter: 2022Q2

REPORT INFORMATION
  Report Type: Spontaneous
  Country: JP (occurrence: JP)
  Receive Date: 20180823
  Receipt Date: 20220414
  Transmission Date: 20220721
  Serious: Yes (Death, Hospitalization, Other)
  Sender: FDA-Public Use
  Company Number: JP-MSD-M2018-25724

PATIENT
  Sex: Male
  Weight: 67 kg

DRUGS (13)
  1. KEYTRUDA [Suspect]
     Active Substance: PEMBROLIZUMAB
     Indication: Bladder cancer stage IV
     Dosage: 200 MG, Q3W
     Route: 041
     Dates: start: 20180603, end: 20180603
  2. PREDNISOLONE [Concomitant]
     Active Substance: PREDNISOLONE
     Indication: Polymyalgia rheumatica
     Dosage: 5 MG/DAY
     Route: 048
     Dates: start: 201510, end: 2018
  3. PREDNISOLONE [Concomitant]
     Active Substance: PREDNISOLONE
     Dosage: 15 MILLIGRAM
     Route: 048
     Dates: start: 201807, end: 20180726
  4. PREDNISOLONE [Concomitant]
     Active Substance: PREDNISOLONE
     Dosage: 10 MILLIGRAM
     Route: 048
     Dates: start: 20180727
  5. RABEPRAZOLE SODIUM [Concomitant]
     Active Substance: RABEPRAZOLE SODIUM
     Indication: Gastrooesophageal reflux disease
     Dosage: 10 MG/DAY
     Route: 048
     Dates: start: 201510
  6. MICARDIS [Concomitant]
     Active Substance: TELMISARTAN
     Indication: Hypertension
     Dosage: 40 MG/DAY
     Route: 048
     Dates: start: 201510
  7. AMLODIPINE BESYLATE [Concomitant]
     Active Substance: AMLODIPINE BESYLATE
     Indication: Hypertension
     Dosage: 10 MILLIGRAM/DAY
     Route: 048
     Dates: start: 201510
  8. SILODOSIN [Concomitant]
     Active Substance: SILODOSIN
     Indication: Benign prostatic hyperplasia
     Dosage: 8 MG/DAY
     Route: 048
     Dates: start: 201510
  9. BIO-THREE [Concomitant]
     Active Substance: HERBALS
     Dosage: 3 DF/DAY
     Route: 048
     Dates: start: 201510
  10. SULFAMETHOXAZOLE\TRIMETHOPRIM [Concomitant]
     Active Substance: SULFAMETHOXAZOLE\TRIMETHOPRIM
     Indication: Infection prophylaxis
     Dosage: 0.5 DF, MONDAY, WEDNESDAY, FRIDAY
     Route: 048
     Dates: start: 201510
  11. CALONAL [Concomitant]
     Active Substance: ACETAMINOPHEN
     Indication: Analgesic therapy
     Dosage: 1500 MILLIGRAM/DAY, PRN
     Route: 048
     Dates: start: 201807
  12. BONALON [Concomitant]
     Active Substance: ALENDRONATE SODIUM
     Dosage: 35 MG/WEEK
     Route: 065
     Dates: start: 201510
  13. SHAKUYAKUKANZOTO [Concomitant]
     Active Substance: HERBALS
     Indication: Muscle spasms
     Dosage: UNK UNK, TID
     Route: 048

REACTIONS (8)
  - Haemophagocytic lymphohistiocytosis [Fatal]
  - Thrombotic microangiopathy [Fatal]
  - Platelet count decreased [Fatal]
  - Haemolytic anaemia [Fatal]
  - Circulatory collapse [Fatal]
  - Malignant neoplasm progression [Unknown]
  - Polymyalgia rheumatica [Unknown]
  - Thrombotic thrombocytopenic purpura [Unknown]

NARRATIVE: CASE EVENT DATE: 20180101
